FAERS Safety Report 16967942 (Version 2)
Quarter: 2019Q4

REPORT INFORMATION
  Report Type: Report from Study
  Country: US (occurrence: US)
  Receive Date: 20191028
  Receipt Date: 20191203
  Transmission Date: 20200122
  Serious: No
  Sender: FDA-Public Use
  Company Number: US-SHIRE-US201936592

PATIENT
  Sex: Female

DRUGS (2)
  1. GATTEX [Suspect]
     Active Substance: TEDUGLUTIDE\WATER
     Dosage: 1.5 MILLIGRAM, 1X/DAY:QD
     Route: 058
     Dates: start: 20190830
  2. GATTEX [Suspect]
     Active Substance: TEDUGLUTIDE\WATER
     Indication: SHORT-BOWEL SYNDROME
     Dosage: 2.45 MILLIGRAM, 1X/DAY:QD
     Route: 058
     Dates: start: 20190830

REACTIONS (3)
  - Corneal disorder [Unknown]
  - Abdominal pain [Unknown]
  - Multimorbidity [Unknown]
